FAERS Safety Report 21663499 (Version 1)
Quarter: 2022Q4

REPORT INFORMATION
  Report Type: Spontaneous
  Country: US (occurrence: None)
  Receive Date: 20221129
  Receipt Date: 20221129
  Transmission Date: 20230113
  Serious: No
  Sender: FDA-Public Use
  Company Number: None

PATIENT
  Age: 64 Year
  Sex: Female
  Weight: 60.75 kg

DRUGS (2)
  1. NAPROXEN [Suspect]
     Active Substance: NAPROXEN
     Indication: Osteoarthritis
     Dates: start: 20221001, end: 20221121
  2. TYLENOL [Concomitant]
     Active Substance: ACETAMINOPHEN

REACTIONS (4)
  - Dementia [None]
  - Headache [None]
  - Amnesia [None]
  - Aphasia [None]

NARRATIVE: CASE EVENT DATE: 20221121
